FAERS Safety Report 14208142 (Version 1)
Quarter: 2017Q4

REPORT INFORMATION
  Report Type: Spontaneous
  Country: US (occurrence: US)
  Receive Date: 20171120
  Receipt Date: 20171120
  Transmission Date: 20180321
  Serious: Yes (Other)
  Sender: FDA-Public Use
  Company Number: None

PATIENT
  Age: 62 Year
  Sex: Female
  Weight: 74.25 kg

DRUGS (7)
  1. FOLATE [Concomitant]
     Active Substance: FOLATE SODIUM
  2. CHLOR [Concomitant]
  3. REPATHA [Suspect]
     Active Substance: EVOLOCUMAB
     Indication: BLOOD CHOLESTEROL
     Dosage: ?          OTHER FREQUENCY:EVERY 15 DAYS;?
     Route: 058
     Dates: start: 20170101, end: 20170530
  4. WELCHOL [Concomitant]
     Active Substance: COLESEVELAM HYDROCHLORIDE
  5. VITAMIN D3 [Concomitant]
     Active Substance: CHOLECALCIFEROL
  6. REPATHA [Suspect]
     Active Substance: EVOLOCUMAB
     Indication: BLOOD TRIGLYCERIDES
     Dosage: ?          OTHER FREQUENCY:EVERY 15 DAYS;?
     Route: 058
     Dates: start: 20170101, end: 20170530
  7. SYNTHROID [Concomitant]
     Active Substance: LEVOTHYROXINE SODIUM

REACTIONS (1)
  - Pain [None]

NARRATIVE: CASE EVENT DATE: 20170505
